FAERS Safety Report 4966984-8 (Version None)
Quarter: 2006Q2

REPORT INFORMATION
  Report Type: 
  Country: None (occurrence: None)
  Receive Date: 20060403
  Receipt Date: 20060323
  Transmission Date: 20061013
  Serious: Yes (Life-Threatening, Other)
  Sender: FDA-Public Use
  Company Number: 2006041781

PATIENT
  Age: 40 Year
  Sex: Male
  Weight: 108.8633 kg

DRUGS (9)
  1. NEURONTIN [Suspect]
     Indication: RESTLESS LEGS SYNDROME
     Dates: start: 20050101, end: 20060322
  2. NORVASC [Suspect]
     Indication: HYPERTENSION
     Dosage: 1 IN 1 D
     Dates: start: 20060201, end: 20060301
  3. ENALAPRIL MALEATE [Suspect]
     Indication: HYPERTENSION
     Dates: end: 20060201
  4. LIPITOR [Concomitant]
  5. LORATADINE [Concomitant]
  6. REQUIP [Concomitant]
  7. PROVIGIL [Concomitant]
  8. ASPIRIN [Concomitant]
  9. WELLBUTRIN [Concomitant]

REACTIONS (4)
  - DRUG HYPERSENSITIVITY [None]
  - OEDEMA PERIPHERAL [None]
  - PHARYNGEAL OEDEMA [None]
  - THROAT TIGHTNESS [None]
